FAERS Safety Report 24045734 (Version 1)
Quarter: 2024Q3

REPORT INFORMATION
  Report Type: Spontaneous
  Country: US (occurrence: None)
  Receive Date: 20240702
  Receipt Date: 20240702
  Transmission Date: 20241016
  Serious: Yes (Other)
  Sender: Public
  Company Number: None

PATIENT
  Age: 43 Year
  Sex: Female
  Weight: 79.2 kg

DRUGS (4)
  1. OCREVUS [Suspect]
     Active Substance: OCRELIZUMAB
     Indication: Multiple sclerosis
     Dosage: 300 MG 2 INFUSIONS ONLY INTRAVENOUS?
     Route: 042
     Dates: start: 20240219, end: 20240308
  2. DIPHENHYDRAMINE [Concomitant]
  3. ACETAMINOPHEN [Concomitant]
  4. SOLU-MEDROL [Concomitant]
     Active Substance: METHYLPREDNISOLONE SODIUM SUCCINATE

REACTIONS (11)
  - Infusion related reaction [None]
  - Eye pruritus [None]
  - Throat irritation [None]
  - Abnormal sensation in eye [None]
  - Generalised oedema [None]
  - Retinal oedema [None]
  - Pain [None]
  - Pain in extremity [None]
  - Erythema [None]
  - Fatigue [None]
  - Liver function test increased [None]

NARRATIVE: CASE EVENT DATE: 20240219
